FAERS Safety Report 20320954 (Version 3)
Quarter: 2022Q1

REPORT INFORMATION
  Report Type: Spontaneous
  Country: PL (occurrence: PL)
  Receive Date: 20220111
  Receipt Date: 20220120
  Transmission Date: 20220424
  Serious: Yes (Other)
  Sender: FDA-Public Use
  Company Number: PL-SUN PHARMACEUTICAL INDUSTRIES LTD-2021RR-323143

PATIENT
  Age: 88 Year
  Sex: Male

DRUGS (45)
  1. RAMIPRIL [Suspect]
     Active Substance: RAMIPRIL
     Indication: Product used for unknown indication
     Dosage: 5 MILLIGRAM, DAILY, 2.5 MG, BID, IN THE MORNING AND EVENING
     Route: 065
  2. RAMIPRIL [Suspect]
     Active Substance: RAMIPRIL
     Dosage: 5 MILLIGRAM, DAILY, 2.5 MG, BID, IN THE MORNING AND EVENING
     Route: 065
  3. ATORVASTATIN [Suspect]
     Active Substance: ATORVASTATIN
     Indication: Product used for unknown indication
     Dosage: 40 MILLIGRAM, DAILY
     Route: 065
     Dates: start: 201810
  4. ATORVASTATIN [Suspect]
     Active Substance: ATORVASTATIN
     Dosage: 40 MILLIGRAM, DAILY
     Route: 065
     Dates: start: 201910
  5. ATORVASTATIN [Suspect]
     Active Substance: ATORVASTATIN
     Dosage: 40 MILLIGRAM, DAILY
     Route: 065
     Dates: start: 201810
  6. ROSUVASTATIN [Suspect]
     Active Substance: ROSUVASTATIN
     Indication: Product used for unknown indication
     Dosage: 10 MG, QD
     Route: 065
     Dates: start: 202109
  7. ROSUVASTATIN [Suspect]
     Active Substance: ROSUVASTATIN
     Dosage: 10 MG, QD
     Route: 065
     Dates: start: 201910
  8. ROSUVASTATIN [Suspect]
     Active Substance: ROSUVASTATIN
     Dosage: 20 MG, QD
     Route: 065
     Dates: start: 20211112
  9. PANTOPRAZOLE [Suspect]
     Active Substance: PANTOPRAZOLE
     Indication: Product used for unknown indication
  10. SACUBITRIL\VALSARTAN [Suspect]
     Active Substance: SACUBITRIL\VALSARTAN
     Indication: Product used for unknown indication
     Dosage: 2 DOSAGE FORM (49/51 MG ), BID ()
     Route: 065
     Dates: start: 201911
  11. SACUBITRIL\VALSARTAN [Suspect]
     Active Substance: SACUBITRIL\VALSARTAN
     Dosage: DOSAGE FORM (24/26 MG) ()
     Route: 065
     Dates: start: 202109
  12. SACUBITRIL\VALSARTAN [Suspect]
     Active Substance: SACUBITRIL\VALSARTAN
     Dosage: DOSAGE FORM (24/26 MG) BID ()
     Route: 065
     Dates: start: 20211112
  13. SACUBITRIL\VALSARTAN [Suspect]
     Active Substance: SACUBITRIL\VALSARTAN
     Dosage: DOSAGE FORM (24/26 MG) ()   UNK
     Route: 065
     Dates: start: 201810
  14. FUROSEMIDE [Suspect]
     Active Substance: FUROSEMIDE
     Indication: Product used for unknown indication
     Dosage: 50 MILLIGRAM, DAILY
     Route: 065
  15. FUROSEMIDE [Suspect]
     Active Substance: FUROSEMIDE
     Dosage: 80 MILLIGRAM, DAILY, 40 MG, BID
     Route: 065
     Dates: start: 202109
  16. FUROSEMIDE [Suspect]
     Active Substance: FUROSEMIDE
     Dosage: 80 MILLIGRAM, DAILY, 40 MG, BID
     Route: 065
     Dates: start: 20211112
  17. FUROSEMIDE [Suspect]
     Active Substance: FUROSEMIDE
     Dosage: 40 MILLIGRAM, DAILY
     Route: 065
     Dates: start: 201910
  18. FUROSEMIDE [Suspect]
     Active Substance: FUROSEMIDE
     Dosage: 80 MILLIGRAM, DAILY, 40 MG, BID
     Route: 065
     Dates: start: 201810
  19. FUROSEMIDE [Suspect]
     Active Substance: FUROSEMIDE
     Dosage: 80 MILLIGRAM, DAILY,40 MG, BID, IN THE MORNING
     Route: 065
     Dates: start: 201810
  20. FUROSEMIDE [Suspect]
     Active Substance: FUROSEMIDE
     Dosage: 80 MILLIGRAM, DAILY,40 MG, BID, IN THE MORNING
     Route: 065
     Dates: start: 201910
  21. APIXABAN [Suspect]
     Active Substance: APIXABAN
     Indication: Product used for unknown indication
     Dosage: 5 MILLIGRAM, DAILY, 2.5 MG, BID
     Route: 065
     Dates: start: 201810
  22. APIXABAN [Suspect]
     Active Substance: APIXABAN
     Dosage: 5 MILLIGRAM, DAILY, 2.5 MG, BID
     Route: 065
     Dates: start: 201910
  23. APIXABAN [Suspect]
     Active Substance: APIXABAN
     Dosage: 5 MILLIGRAM, DAILY, 2.5 MG, BID
     Route: 065
     Dates: start: 20211112
  24. EPLERENONE [Suspect]
     Active Substance: EPLERENONE
     Indication: Product used for unknown indication
     Dosage: 50 MILLIGRAM, DAILY
     Route: 065
     Dates: start: 201910
  25. EPLERENONE [Suspect]
     Active Substance: EPLERENONE
     Dosage: 25 MG QD, AT NOON
     Route: 065
     Dates: start: 201810
  26. EPLERENONE [Suspect]
     Active Substance: EPLERENONE
     Dosage: 25 MG QD, 1/2
     Route: 065
     Dates: start: 202109
  27. EPLERENONE [Suspect]
     Active Substance: EPLERENONE
     Dosage: 25 MG, QD
     Route: 065
     Dates: start: 20211112
  28. EPLERENONE [Suspect]
     Active Substance: EPLERENONE
     Dosage: 50 MILLIGRAM, DAILY
     Route: 065
     Dates: start: 201910
  29. METOPROLOL [Suspect]
     Active Substance: METOPROLOL
     Indication: Product used for unknown indication
     Dosage: 75 MILLIGRAM, DAILY, 25 MG, TID, IN THE MORNING, AT NOON AND IN THE EVENING
     Route: 065
     Dates: start: 201810
  30. METOPROLOL [Suspect]
     Active Substance: METOPROLOL
     Dosage: 5 MILLIGRAM, DAILY
     Route: 065
     Dates: start: 20211112
  31. METOPROLOL [Suspect]
     Active Substance: METOPROLOL
     Dosage: 50 ? 25 ? 25 MG ()
     Route: 065
     Dates: start: 201810
  32. METOPROLOL [Suspect]
     Active Substance: METOPROLOL
     Dosage: 75 MILLIGRAM, DAILY, 25 MG, TID, IN THE MORNING, AT NOON AND IN THE EVENING
     Route: 065
     Dates: start: 201910
  33. METOPROLOL [Suspect]
     Active Substance: METOPROLOL
     Dosage: 200 MILLIGRAM, DAILY, 100 MG, BID
     Route: 065
     Dates: start: 201911
  34. TORSEMIDE [Suspect]
     Active Substance: TORSEMIDE
     Indication: Product used for unknown indication
     Dosage: 20 MILLIGRAM, DAILY, 10 MG, BID
     Route: 065
     Dates: start: 20211112
  35. TORSEMIDE [Suspect]
     Active Substance: TORSEMIDE
     Dosage: 10 MILLIGRAM, DAILY
     Route: 065
     Dates: start: 201910
  36. TORSEMIDE [Suspect]
     Active Substance: TORSEMIDE
     Dosage: 20 MILLIGRAM, DAILY, 10 MG, BID
     Route: 065
     Dates: start: 202109
  37. TORSEMIDE [Suspect]
     Active Substance: TORSEMIDE
     Dosage: 10 MILLIGRAM, DAILY
     Route: 065
     Dates: start: 201810
  38. TORSEMIDE [Suspect]
     Active Substance: TORSEMIDE
     Dosage: 15 MG, QD
     Route: 065
     Dates: start: 201910
  39. TORSEMIDE [Suspect]
     Active Substance: TORSEMIDE
     Dosage: 15 MG, QD
     Route: 065
     Dates: start: 201810
  40. OMEPRAZOLE [Suspect]
     Active Substance: OMEPRAZOLE
     Indication: Product used for unknown indication
     Dosage: 10 MG, QD
     Route: 065
     Dates: start: 202109
  41. OMEPRAZOLE [Suspect]
     Active Substance: OMEPRAZOLE
     Dosage: 20 MG, QD
     Route: 065
     Dates: start: 201910
  42. OMEPRAZOLE [Suspect]
     Active Substance: OMEPRAZOLE
     Dosage: 20 MG, QD
     Route: 065
     Dates: start: 20211112
  43. OMEPRAZOLE [Suspect]
     Active Substance: OMEPRAZOLE
     Dosage: 20 MG, QD
     Route: 065
     Dates: start: 201810
  44. ASPIRIN [Suspect]
     Active Substance: ASPIRIN
     Indication: Product used for unknown indication
     Dosage: 5 MILLIGRAM, DAILY, 2.5 MG, BID
     Route: 065
     Dates: start: 201810
  45. UNSPECIFIED INGREDIENT [Suspect]
     Active Substance: UNSPECIFIED INGREDIENT
     Indication: Product used for unknown indication
     Dosage: UNK
     Route: 065

REACTIONS (17)
  - Dyskinesia [Unknown]
  - Pulmonary congestion [Unknown]
  - Cardiac failure chronic [Unknown]
  - Disease progression [Unknown]
  - Cardiomyopathy [Unknown]
  - Ventricular arrhythmia [Unknown]
  - Myopathy [Unknown]
  - Urinary tract infection [Unknown]
  - Sinus tachycardia [Unknown]
  - Low cardiac output syndrome [Unknown]
  - Chronic kidney disease [Unknown]
  - Cardiac failure [Unknown]
  - Congestive cardiomyopathy [Unknown]
  - Cardiogenic shock [Unknown]
  - Pneumonia [Unknown]
  - Atrial thrombosis [Unknown]
  - Atrial fibrillation [Unknown]

NARRATIVE: CASE EVENT DATE: 20180101
